FAERS Safety Report 16398021 (Version 1)
Quarter: 2019Q2

REPORT INFORMATION
  Report Type: Spontaneous
  Country: US (occurrence: US)
  Receive Date: 20190606
  Receipt Date: 20190606
  Transmission Date: 20190711
  Serious: No
  Sender: FDA-Public Use
  Company Number: US-JNJFOC-20190534250

PATIENT
  Age: 64 Year
  Sex: Male
  Weight: 86.18 kg

DRUGS (1)
  1. TYLENOL EXTRA STRENGTH [Suspect]
     Active Substance: ACETAMINOPHEN
     Indication: HEADACHE
     Dosage: 3-4 TIMES DAILY
     Route: 048

REACTIONS (2)
  - Drug ineffective [Unknown]
  - Product physical issue [Unknown]
